FAERS Safety Report 5728300-3 (Version None)
Quarter: 2008Q2

REPORT INFORMATION
  Report Type: 
  Country: None (occurrence: None)
  Receive Date: 20080430
  Receipt Date: 20080130
  Transmission Date: 20081010
  Serious: No
  Sender: FDA-Public Use
  Company Number: 2008PV034086

PATIENT
  Age: 68 Year
  Sex: Female

DRUGS (3)
  1. SYMLIN [Suspect]
     Indication: DIABETES MELLITUS
     Dosage: TID;SC
     Route: 058
  2. SYMLIN [Suspect]
     Indication: DIABETES MELLITUS
     Dosage: 15 MCG;SC
     Route: 058
  3. HUMALOG MIX 75/25 [Concomitant]

REACTIONS (1)
  - INJECTION SITE PAIN [None]
